FAERS Safety Report 6052410-7 (Version None)
Quarter: 2009Q1

REPORT INFORMATION
  Report Type: 
  Country: None (occurrence: None)
  Receive Date: 20090121
  Receipt Date: 20090113
  Transmission Date: 20090719
  Serious: No
  Sender: FDA-Public Use
  Company Number: 090014

PATIENT
  Sex: Female

DRUGS (1)
  1. NULYTELY-FLAVORED [Suspect]
     Indication: COLONOSCOPY
     Dosage: 4L/1X/PO
     Route: 048
     Dates: start: 20090109

REACTIONS (1)
  - ANAPHYLACTIC REACTION [None]
